FAERS Safety Report 17505374 (Version 1)
Quarter: 2020Q1

REPORT INFORMATION
  Report Type: Spontaneous
  Country: CN (occurrence: CN)
  Receive Date: 20200305
  Receipt Date: 20200305
  Transmission Date: 20200409
  Serious: Yes (Death, Other)
  Sender: FDA-Public Use
  Company Number: CN-JNJFOC-20200239649

PATIENT
  Age: 65 Year
  Sex: Female

DRUGS (6)
  1. THALIDOMIDE [Concomitant]
     Active Substance: THALIDOMIDE
     Indication: TEMPORAL ARTERITIS
     Dosage: UNK
  2. ALFACALCIDOL [Concomitant]
     Active Substance: ALFACALCIDOL
     Indication: TEMPORAL ARTERITIS
     Dosage: UNK
  3. RIVAROXABAN [Suspect]
     Active Substance: RIVAROXABAN
     Dosage: 20 MG, QD
     Route: 048
  4. LEFLUNOMIDE. [Concomitant]
     Active Substance: LEFLUNOMIDE
     Indication: TEMPORAL ARTERITIS
     Dosage: UNK
  5. METHYLPREDNISOLONE. [Concomitant]
     Active Substance: METHYLPREDNISOLONE
     Indication: TEMPORAL ARTERITIS
     Dosage: UNK
  6. RIVAROXABAN [Suspect]
     Active Substance: RIVAROXABAN
     Indication: DEEP VEIN THROMBOSIS
     Dosage: 10 MG, QD
     Route: 048

REACTIONS (4)
  - Off label use [Unknown]
  - Epidermolysis bullosa [Fatal]
  - Drug eruption [Not Recovered/Not Resolved]
  - Pyrexia [Recovered/Resolved]
